FAERS Safety Report 12386180 (Version 1)
Quarter: 2016Q2

REPORT INFORMATION
  Report Type: Spontaneous
  Country: US (occurrence: US)
  Receive Date: 20160519
  Receipt Date: 20160519
  Transmission Date: 20160815
  Serious: No
  Sender: FDA-Public Use
  Company Number: US-ENDO PHARMACEUTICALS INC.-2015-002877

PATIENT
  Age: 72 Year
  Sex: Female
  Weight: 65.38 kg

DRUGS (2)
  1. LORAZEPAM TABLETS [Suspect]
     Active Substance: LORAZEPAM
     Route: 048
     Dates: start: 20150912, end: 2015
  2. LORAZEPAM TABLETS [Suspect]
     Active Substance: LORAZEPAM
     Indication: INSOMNIA
     Route: 048
     Dates: start: 201508, end: 201508

REACTIONS (2)
  - Off label use [Recovered/Resolved]
  - Abdominal discomfort [Not Recovered/Not Resolved]

NARRATIVE: CASE EVENT DATE: 201508
